FAERS Safety Report 5575661-4 (Version None)
Quarter: 2007Q4

REPORT INFORMATION
  Report Type: 
  Country: None (occurrence: None)
  Receive Date: 20071221
  Receipt Date: 20071210
  Transmission Date: 20080405
  Serious: Yes (Other)
  Sender: FDA-Public Use
  Company Number: S07-LUX-06422-01

PATIENT
  Sex: Female

DRUGS (2)
  1. CAMPRAL [Suspect]
     Dosage: 333 MG QD PO
     Route: 048
     Dates: end: 20070101
  2. ANTIDEPRESSOR (NOS) [Concomitant]

REACTIONS (1)
  - FLUID RETENTION [None]
